FAERS Safety Report 7459535-X (Version None)
Quarter: 2011Q2

REPORT INFORMATION
  Report Type: 
  Country: None (occurrence: None)
  Receive Date: 20110505
  Receipt Date: 20110427
  Transmission Date: 20111010
  Serious: Yes (Hospitalization)
  Sender: FDA-Public Use
  Company Number: FR-NOVOPROD-326498

PATIENT
  Age: 69 Year
  Sex: Male
  Weight: 89 kg

DRUGS (5)
  1. VICTOZA [Suspect]
     Indication: TYPE 2 DIABETES MELLITUS
     Dosage: 0.6 MG, QD
     Route: 058
     Dates: start: 20110329, end: 20110331
  2. EZETIMIBE [Concomitant]
     Dosage: 10 MG, QD
     Route: 048
  3. OMACOR                             /00931501/ [Concomitant]
     Route: 048
  4. AMARYL [Concomitant]
     Dosage: UNK
     Route: 048
     Dates: start: 20110330
  5. METFORMIN [Concomitant]
     Dosage: 850X 3
     Route: 048

REACTIONS (1)
  - LIPASE INCREASED [None]
